FAERS Safety Report 6210208-0 (Version None)
Quarter: 2009Q2

REPORT INFORMATION
  Report Type: 
  Country: None (occurrence: None)
  Receive Date: 20090601
  Receipt Date: 20090529
  Transmission Date: 20091009
  Serious: Yes (Hospitalization)
  Sender: FDA-Public Use
  Company Number: JP-BAYER-200911771BYL

PATIENT
  Age: 81 Year
  Sex: Male
  Weight: 71 kg

DRUGS (9)
  1. NEXAVAR [Suspect]
     Indication: RENAL CELL CARCINOMA STAGE IV
     Dosage: UNIT DOSE: 200 MG
     Route: 048
     Dates: start: 20090501
  2. LOXONIN [Suspect]
     Indication: DRUG USE FOR UNKNOWN INDICATION
     Route: 065
  3. PRORENAL [Concomitant]
     Route: 048
     Dates: start: 20090519
  4. CALONAL [Concomitant]
     Route: 048
     Dates: start: 20090519
  5. OXYCONTIN [Concomitant]
     Route: 048
     Dates: start: 20090519
  6. NOVAMIN [Concomitant]
     Route: 048
     Dates: start: 20090519
  7. ARGAMATE [Concomitant]
     Route: 048
     Dates: start: 20090523
  8. OMEPRAL [Concomitant]
     Route: 042
     Dates: start: 20090524
  9. FERRICON [Concomitant]
     Route: 042
     Dates: start: 20090524

REACTIONS (2)
  - GASTRIC ULCER [None]
  - PLATELET COUNT DECREASED [None]
